FAERS Safety Report 17781405 (Version 2)
Quarter: 2020Q2

REPORT INFORMATION
  Report Type: Spontaneous
  Country: IT (occurrence: IT)
  Receive Date: 20200514
  Receipt Date: 20200515
  Transmission Date: 20200714
  Serious: Yes (Other)
  Sender: FDA-Public Use
  Company Number: IT-MYLANLABS-2020M1046326

PATIENT
  Age: 47 Year
  Sex: Male

DRUGS (11)
  1. DASATINIB. [Suspect]
     Active Substance: DASATINIB
     Indication: CHRONIC MYELOID LEUKAEMIA
  2. PONATINIB [Suspect]
     Active Substance: PONATINIB
     Dosage: 30 MG, PER DAY
  3. IMATINIB. [Suspect]
     Active Substance: IMATINIB MESYLATE
     Indication: CHRONIC MYELOID LEUKAEMIA
  4. ACETYLSALICYLIC ACID [Concomitant]
     Active Substance: ASPIRIN
     Dosage: 30 MILLIGRAM
     Route: 065
  5. ACETYLSALICYLIC ACID [Concomitant]
     Active Substance: ASPIRIN
     Dosage: 100 MILLIGRAMS, DAILY (LOW-DOSE)
     Route: 065
  6. ACETYLSALICYLIC ACID [Concomitant]
     Active Substance: ASPIRIN
     Dosage: 45 MILLIGRAM
     Route: 065
  7. IMATINIB. [Suspect]
     Active Substance: IMATINIB MESYLATE
     Indication: CHEMOTHERAPY
     Dosage: FIRST-LINE
     Route: 065
  8. ACETYLSALICYLIC ACID [Concomitant]
     Active Substance: ASPIRIN
     Indication: PRODUCT USED FOR UNKNOWN INDICATION
     Dosage: 15 MILLIGRAM
     Route: 065
  9. DASATINIB. [Suspect]
     Active Substance: DASATINIB
     Indication: CHEMOTHERAPY
     Dosage: 50 MG, EVERY OTHER DAY
     Route: 065
     Dates: start: 201610
  10. PONATINIB [Suspect]
     Active Substance: PONATINIB
     Indication: CHRONIC MYELOID LEUKAEMIA
     Dosage: 15 MG, PER DAY
  11. PONATINIB [Suspect]
     Active Substance: PONATINIB
     Dosage: 45 MG, PER DAY

REACTIONS (7)
  - Lipase increased [Unknown]
  - Muscle spasms [Recovered/Resolved]
  - Therapy partial responder [Unknown]
  - Pleural effusion [Unknown]
  - Amylase increased [Unknown]
  - Oedema [Unknown]
  - Drug intolerance [Unknown]
